FAERS Safety Report 25309180 (Version 1)
Quarter: 2025Q2

REPORT INFORMATION
  Report Type: Spontaneous
  Country: BR (occurrence: BR)
  Receive Date: 20250513
  Receipt Date: 20250513
  Transmission Date: 20250716
  Serious: Yes (Other)
  Sender: BEIGENE
  Company Number: BR-BEIGENE-BGN-2024-016534

PATIENT
  Age: 67 Year

DRUGS (1)
  1. BRUKINSA [Suspect]
     Active Substance: ZANUBRUTINIB
     Indication: Chronic lymphocytic leukaemia

REACTIONS (5)
  - Tumour lysis syndrome [Unknown]
  - Renal failure [Unknown]
  - Oedema peripheral [Unknown]
  - Haematoma [Unknown]
  - Gingival bleeding [Recovered/Resolved]
